FAERS Safety Report 5211561-7 (Version None)
Quarter: 2007Q1

REPORT INFORMATION
  Report Type: 
  Country: None (occurrence: None)
  Receive Date: 20070116
  Receipt Date: 20070116
  Transmission Date: 20070707
  Serious: Yes (Other)
  Sender: FDA-Public Use
  Company Number: None

PATIENT
  Age: 27 Year
  Sex: Female
  Weight: 64.4108 kg

DRUGS (2)
  1. LO/OVRAL [Suspect]
  2. YASMIN [Suspect]

REACTIONS (1)
  - METRORRHAGIA [None]
